FAERS Safety Report 5261281-8 (Version None)
Quarter: 2007Q1

REPORT INFORMATION
  Report Type: 
  Country: None (occurrence: None)
  Receive Date: 20070309
  Receipt Date: 20070302
  Transmission Date: 20070707
  Serious: Yes (Other)
  Sender: FDA-Public Use
  Company Number: US-PFIZER INC-2007017499

PATIENT
  Sex: Female
  Weight: 64.9 kg

DRUGS (4)
  1. ZOLOFT [Suspect]
     Indication: FEELING OF RELAXATION
  2. CHANTIX [Interacting]
     Indication: SMOKING CESSATION THERAPY
     Dates: start: 20070101
  3. ADVAIR DISKUS 100/50 [Concomitant]
  4. BENTYL [Interacting]

REACTIONS (3)
  - AMNESIA [None]
  - DISTURBANCE IN ATTENTION [None]
  - DRUG INTERACTION [None]
